FAERS Safety Report 4430279-1 (Version None)
Quarter: 2004Q3

REPORT INFORMATION
  Report Type: 
  Country: None (occurrence: None)
  Receive Date: 20040817
  Receipt Date: 20040806
  Transmission Date: 20050211
  Serious: Yes (Other)
  Sender: FDA-Public Use
  Company Number: 2004223832FI

PATIENT
  Age: 58 Year
  Sex: Female
  Weight: 85 kg

DRUGS (7)
  1. BEXTRA [Suspect]
     Indication: OSTEOARTHRITIS
     Dosage: SEE IMAGE
     Route: 048
     Dates: start: 20040401
  2. BEXTRA [Suspect]
     Indication: OSTEOARTHRITIS
     Dosage: SEE IMAGE
     Route: 048
     Dates: start: 20040707
  3. HYALGAN [Concomitant]
  4. ACETAMINOPHEN [Concomitant]
  5. TENOX [Concomitant]
  6. ARTHRYL (ACETYL-GLUCOSAMINE, SODIUM SULFATE, DIETHANOLAMINE) [Concomitant]
  7. PLENDIL [Concomitant]

REACTIONS (1)
  - PRURITUS GENERALISED [None]
